FAERS Safety Report 24836025 (Version 1)
Quarter: 2025Q1

REPORT INFORMATION
  Report Type: Spontaneous
  Country: ES (occurrence: ES)
  Receive Date: 20250113
  Receipt Date: 20250113
  Transmission Date: 20250409
  Serious: Yes (Hospitalization, Other)
  Sender: ALKEM
  Company Number: ES-ALKEM LABORATORIES LIMITED-ES-ALKEM-2024-26905

PATIENT
  Age: 41 Year
  Sex: Female

DRUGS (6)
  1. ESLICARBAZEPINE [Suspect]
     Active Substance: ESLICARBAZEPINE
     Indication: Partial seizures
     Route: 065
  2. ESLICARBAZEPINE [Suspect]
     Active Substance: ESLICARBAZEPINE
     Route: 065
  3. ESLICARBAZEPINE [Suspect]
     Active Substance: ESLICARBAZEPINE
     Route: 065
  4. LACOSAMIDE [Concomitant]
     Active Substance: LACOSAMIDE
     Indication: Epilepsy
     Dosage: 600 MILLIGRAM, QD
     Route: 065
  5. LEVETIRACETAM [Concomitant]
     Active Substance: LEVETIRACETAM
     Indication: Epilepsy
     Dosage: 4000 MILLIGRAM, QD
     Route: 065
  6. MEROPENEM [Concomitant]
     Active Substance: MEROPENEM
     Indication: Meningitis
     Route: 065

REACTIONS (1)
  - Erythema multiforme [Recovered/Resolved]
